FAERS Safety Report 8957780 (Version 2)
Quarter: 2013Q1

REPORT INFORMATION
  Report Type: Report from Study
  Country: CA (occurrence: CA)
  Receive Date: 20121211
  Receipt Date: 20130308
  Transmission Date: 20140127
  Serious: Yes (Hospitalization)
  Sender: FDA-Public Use
  Company Number: CA-JNJFOC-20121200629

PATIENT
  Age: 65 Year
  Sex: Male
  Weight: 72.58 kg

DRUGS (4)
  1. SIMPONI [Suspect]
     Indication: ANKYLOSING SPONDYLITIS
     Route: 058
     Dates: start: 20120301, end: 201211
  2. VOLTAREN [Concomitant]
     Route: 048
  3. ALL OTHER THERAPEUTIC PRODUCTS [Concomitant]
     Indication: DIABETES MELLITUS
  4. ALL OTHER THERAPEUTIC PRODUCTS [Concomitant]
     Indication: HYPERTENSION

REACTIONS (4)
  - Encephalitis viral [Unknown]
  - Convulsion [Recovering/Resolving]
  - Loss of consciousness [Recovering/Resolving]
  - Hemiplegia [Recovering/Resolving]
